FAERS Safety Report 15231812 (Version 1)
Quarter: 2018Q3

REPORT INFORMATION
  Report Type: Spontaneous
  Country: US (occurrence: US)
  Receive Date: 20180802
  Receipt Date: 20180802
  Transmission Date: 20181010
  Serious: No
  Sender: FDA-Public Use
  Company Number: US-ASTRAZENECA-2018SE95273

PATIENT
  Age: 28368 Day
  Sex: Male
  Weight: 95.3 kg

DRUGS (2)
  1. MOVANTIK [Suspect]
     Active Substance: NALOXEGOL OXALATE
     Indication: CONSTIPATION
     Route: 048
     Dates: start: 201806
  2. OXYCODONE [Concomitant]
     Active Substance: OXYCODONE
     Indication: PAIN
     Route: 048

REACTIONS (9)
  - Drug ineffective [Unknown]
  - Diarrhoea [Recovered/Resolved]
  - Intentional product misuse [Unknown]
  - Constipation [Unknown]
  - Asthenia [Recovering/Resolving]
  - Muscle spasms [Recovered/Resolved]
  - Feeling abnormal [Unknown]
  - Tinnitus [Recovering/Resolving]
  - Dehydration [Recovering/Resolving]

NARRATIVE: CASE EVENT DATE: 201806
